FAERS Safety Report 21253920 (Version 1)
Quarter: 2022Q3

REPORT INFORMATION
  Report Type: Spontaneous
  Country: FR (occurrence: FR)
  Receive Date: 20220825
  Receipt Date: 20220825
  Transmission Date: 20221026
  Serious: Yes (Other)
  Sender: FDA-Public Use
  Company Number: None

PATIENT
  Age: 49 Year
  Sex: Male
  Weight: 88 kg

DRUGS (4)
  1. YERVOY [Suspect]
     Active Substance: IPILIMUMAB
     Indication: Metastatic malignant melanoma
     Dosage: 4 COURSES
     Route: 042
     Dates: start: 20191213
  2. OPDIVO [Suspect]
     Active Substance: NIVOLUMAB
     Indication: Metastatic malignant melanoma
     Dosage: 11 COURSES
     Route: 042
     Dates: start: 20200323
  3. OPDIVO [Suspect]
     Active Substance: NIVOLUMAB
     Dosage: 4 COURSES
     Route: 042
     Dates: start: 20191213
  4. OPDIVO [Suspect]
     Active Substance: NIVOLUMAB
     Dosage: 39 COURSES
     Route: 042
     Dates: start: 20200309

REACTIONS (1)
  - Arterial thrombosis [Recovering/Resolving]

NARRATIVE: CASE EVENT DATE: 20220811
